FAERS Safety Report 14674684 (Version 2)
Quarter: 2018Q2

REPORT INFORMATION
  Report Type: Spontaneous
  Country: IT (occurrence: IT)
  Receive Date: 20180323
  Receipt Date: 20180410
  Transmission Date: 20180711
  Serious: Yes (Hospitalization, Other)
  Sender: FDA-Public Use
  Company Number: IT-AUROBINDO-AUR-APL-2018-015945

PATIENT
  Age: 20 Year
  Sex: Male
  Weight: 75 kg

DRUGS (6)
  1. VALIUM [Concomitant]
     Active Substance: DIAZEPAM
     Dosage: ()
  2. VALIUM [Concomitant]
     Active Substance: DIAZEPAM
     Indication: PRODUCT USED FOR UNKNOWN INDICATION
     Dosage: ()
  3. VALPROIC ACID. [Interacting]
     Active Substance: VALPROIC ACID
     Indication: AGGRESSION
     Dosage: 1000 MG, QD
     Route: 048
     Dates: start: 20150707, end: 20150721
  4. SERENASE                           /00027401/ [Interacting]
     Active Substance: HALOPERIDOL
     Indication: PSYCHOMOTOR HYPERACTIVITY
     Dosage: 8 GTT, ONCE A DAY, DOSAGE FORM: SOLUTION
     Route: 048
     Dates: start: 20150710, end: 20150720
  5. ARIPIPRAZOLE TABLETS [Suspect]
     Active Substance: ARIPIPRAZOLE
     Indication: DELUSION OF GRANDEUR
     Dosage: 30 MILLIGRAM, ONCE A DAY
     Route: 048
     Dates: start: 20150707, end: 20150721
  6. VALIUM [Concomitant]
     Active Substance: DIAZEPAM
     Indication: MANIA
     Dosage: 5 MG/ML, UNK
     Route: 048
     Dates: start: 20150707, end: 20150720

REACTIONS (7)
  - Muscle rigidity [Not Recovered/Not Resolved]
  - Dysphagia [Not Recovered/Not Resolved]
  - Gait disturbance [Not Recovered/Not Resolved]
  - Salivary hypersecretion [Not Recovered/Not Resolved]
  - Drug interaction [Not Recovered/Not Resolved]
  - Off label use [Unknown]
  - Dystonia [Not Recovered/Not Resolved]

NARRATIVE: CASE EVENT DATE: 20150721
